FAERS Safety Report 6222698-8 (Version None)
Quarter: 2009Q2

REPORT INFORMATION
  Report Type: 
  Country: None (occurrence: None)
  Receive Date: 20090611
  Receipt Date: 20090605
  Transmission Date: 20091009
  Serious: Yes (Other)
  Sender: FDA-Public Use
  Company Number: B0575638A

PATIENT
  Sex: Female

DRUGS (1)
  1. ALLI [Suspect]
     Indication: DRUG USE FOR UNKNOWN INDICATION
     Route: 048
     Dates: start: 20090503, end: 20090511

REACTIONS (3)
  - BLEEDING TIME PROLONGED [None]
  - GINGIVAL BLEEDING [None]
  - PRODUCT QUALITY ISSUE [None]
